FAERS Safety Report 7667810-9 (Version None)
Quarter: 2011Q3

REPORT INFORMATION
  Report Type: 
  Country: None (occurrence: None)
  Receive Date: 20110806
  Receipt Date: 20110408
  Transmission Date: 20111222
  Serious: No
  Sender: FDA-Public Use
  Company Number: US-ABBOTT-11P-163-0718163-00

PATIENT
  Sex: Male
  Weight: 75.364 kg

DRUGS (3)
  1. NIASPAN [Suspect]
     Dates: start: 20110101, end: 20110329
  2. NIASPAN [Suspect]
     Indication: DYSLIPIDAEMIA
     Dates: start: 20100701, end: 20101101
  3. LIPITOR [Suspect]
     Indication: DYSLIPIDAEMIA
     Dates: start: 20100701, end: 20101201

REACTIONS (3)
  - HEPATIC ENZYME INCREASED [None]
  - INFLUENZA LIKE ILLNESS [None]
  - HEPATITIS ACUTE [None]
